FAERS Safety Report 19472855 (Version 1)
Quarter: 2021Q2

REPORT INFORMATION
  Report Type: Report from Study
  Country: None (occurrence: CA)
  Receive Date: 20210629
  Receipt Date: 20210629
  Transmission Date: 20210717
  Serious: Yes (Other)
  Sender: FDA-Public Use
  Company Number: CA-ABBVIE-21K-028-3965592-00

PATIENT
  Age: 73 Year
  Sex: Female

DRUGS (2)
  1. HUMIRA [Suspect]
     Active Substance: ADALIMUMAB
     Indication: PSORIATIC ARTHROPATHY
     Route: 058
     Dates: start: 20170614
  2. COVID?19 VACCINE NOS. [Suspect]
     Active Substance: COVID-19 VACCINE NOS
     Indication: COVID-19 IMMUNISATION
     Route: 030
     Dates: start: 2021, end: 2021

REACTIONS (14)
  - Loss of consciousness [Recovered/Resolved]
  - Clavicle fracture [Unknown]
  - Fatigue [Unknown]
  - Bedridden [Recovered/Resolved]
  - Hypotension [Not Recovered/Not Resolved]
  - Immobile [Unknown]
  - Fall [Recovered/Resolved]
  - Humerus fracture [Not Recovered/Not Resolved]
  - Malaise [Unknown]
  - Pelvic fracture [Unknown]
  - Psoriatic arthropathy [Recovered/Resolved]
  - Injury [Unknown]
  - Unevaluable event [Not Recovered/Not Resolved]
  - Peripheral swelling [Recovered/Resolved]

NARRATIVE: CASE EVENT DATE: 202008
